FAERS Safety Report 10241285 (Version 2)
Quarter: 2014Q2

REPORT INFORMATION
  Report Type: Spontaneous
  Country: US (occurrence: US)
  Receive Date: 20140617
  Receipt Date: 20140624
  Transmission Date: 20141212
  Serious: No
  Sender: FDA-Public Use
  Company Number: US-PFIZER INC-2014165283

PATIENT
  Sex: Female

DRUGS (2)
  1. CELEBREX [Suspect]
     Indication: MENSTRUAL DISORDER
     Dosage: 200 MG, 2X/DAY
     Route: 048
  2. POTASSIUM [Concomitant]
     Dosage: UNK, DAILY

REACTIONS (1)
  - Drug ineffective for unapproved indication [Unknown]
